FAERS Safety Report 9628546 (Version 5)
Quarter: 2015Q1

REPORT INFORMATION
  Report Type: Spontaneous
  Country: US (occurrence: US)
  Receive Date: 20131017
  Receipt Date: 20150312
  Transmission Date: 20150721
  Serious: Yes (Hospitalization, Other)
  Sender: FDA-Public Use
  Company Number: US-009507513-1310USA005542

PATIENT
  Sex: Female
  Weight: 56.24 kg

DRUGS (10)
  1. ALENDRONATE SODIUM. [Suspect]
     Active Substance: ALENDRONATE SODIUM
     Indication: OSTEOPOROSIS
     Dosage: 70 MG, UNK
     Dates: start: 20080505, end: 20110624
  2. VITAMINS (UNSPECIFIED) [Concomitant]
     Active Substance: VITAMINS
     Dosage: UNK, QD
     Dates: start: 2000
  3. CALCIUM (UNSPECIFIED) [Concomitant]
     Active Substance: CALCIUM
     Indication: OSTEOPOROSIS
     Dosage: 500-600 MG, BID
     Dates: start: 2000
  4. FOSAMAX [Suspect]
     Active Substance: ALENDRONATE SODIUM
     Indication: OSTEOPOROSIS
     Dosage: 10 MG, QD
     Route: 048
     Dates: end: 20010607
  5. CALCIUM (UNSPECIFIED) [Concomitant]
     Active Substance: CALCIUM
     Indication: OSTEOPENIA
  6. VITAMIN E [Concomitant]
     Active Substance: .ALPHA.-TOCOPHEROL
     Dosage: 400 MG, DAILY
     Dates: start: 2000
  7. ASCORBIC ACID. [Concomitant]
     Active Substance: ASCORBIC ACID
     Dosage: 1000 MG, DAILY
     Dates: start: 2000
  8. FOSAMAX [Suspect]
     Active Substance: ALENDRONATE SODIUM
     Indication: OSTEOPENIA
     Dosage: 70 MG, QW
     Route: 048
     Dates: start: 20010608, end: 2011
  9. OMEGA-3 MARINE TRIGLYCERIDES [Concomitant]
     Active Substance: FISH OIL
     Dosage: 1000 MG, QD
     Dates: start: 2000
  10. UBIDECARENONE [Concomitant]
     Active Substance: UBIDECARENONE
     Dosage: 100 MG, DAILY
     Dates: start: 2000

REACTIONS (34)
  - Femur fracture [Unknown]
  - Internal fixation of fracture [Unknown]
  - Surgery [Unknown]
  - Cerebrovascular accident [Unknown]
  - Sciatica [Unknown]
  - Hypertension [Unknown]
  - Pelvic pain [Not Recovered/Not Resolved]
  - Gastrooesophageal reflux disease [Unknown]
  - Surgery [Unknown]
  - Arthritis [Unknown]
  - Cardiac ablation [Unknown]
  - Spinal laminectomy [Unknown]
  - Hip arthroplasty [Unknown]
  - Angioplasty [Unknown]
  - Visual impairment [Unknown]
  - Spinal column stenosis [Unknown]
  - Groin pain [Unknown]
  - Rotator cuff repair [Unknown]
  - Atrial fibrillation [Unknown]
  - Coronary artery disease [Unknown]
  - Cardiac failure congestive [Unknown]
  - Lumbar vertebral fracture [Unknown]
  - Cardiomyopathy [Unknown]
  - Spinal fusion surgery [Unknown]
  - Fall [Unknown]
  - Cataract operation [Unknown]
  - Malaise [Unknown]
  - Upper limb fracture [Unknown]
  - Limb asymmetry [Unknown]
  - Bone deformity [Unknown]
  - Intramedullary rod insertion [Unknown]
  - Lower limb fracture [Unknown]
  - Back pain [Not Recovered/Not Resolved]
  - Back pain [Not Recovered/Not Resolved]

NARRATIVE: CASE EVENT DATE: 2001
